FAERS Safety Report 5286382-X (Version None)
Quarter: 2007Q1

REPORT INFORMATION
  Report Type: 
  Country: None (occurrence: None)
  Receive Date: 20070329
  Receipt Date: 20070317
  Transmission Date: 20070707
  Serious: Yes (Hospitalization)
  Sender: FDA-Public Use
  Company Number: 009-C5013-07011535

PATIENT
  Age: 67 Year
  Sex: Male

DRUGS (9)
  1. CC-5013 (LENALIDOMIDE) (CAPSULES) [Suspect]
     Indication: MULTIPLE MYELOMA
     Dosage: 10 MG, ORAL
     Route: 048
     Dates: start: 20061206, end: 20070207
  2. CC-5013 (LENALIDOMIDE) (CAPSULES) [Suspect]
     Indication: MULTIPLE MYELOMA
     Dosage: 10 MG, ORAL
     Route: 048
     Dates: start: 20070220, end: 20070302
  3. DEXAMETHASONE TAB [Suspect]
     Indication: MULTIPLE MYELOMA
  4. MARCUMAR [Suspect]
     Dosage: 1/4 DAILY AND 1/2 ON WEDNESDAY+SATURDAY
  5. NEURONTIN (GABAPENTIN) (300 MILLIGRAM) [Concomitant]
  6. DAFLON (DIOSMIN) (500 MILLIGRAM) [Concomitant]
  7. CONCOR (BISOPROLOL FUMARATE) (5 MICROGRAM) [Concomitant]
  8. LASILACTON (OSYROL-LASIX) [Concomitant]
  9. LASIX (FUROSEMIDE) (30 MICROGRAM) [Concomitant]

REACTIONS (13)
  - ACUTE RESPIRATORY DISTRESS SYNDROME [None]
  - AORTIC ARTERIOSCLEROSIS [None]
  - ATRIAL FIBRILLATION [None]
  - BLOOD CALCIUM DECREASED [None]
  - BRONCHITIS [None]
  - CARDIOMEGALY [None]
  - FATIGUE [None]
  - GENERAL PHYSICAL HEALTH DETERIORATION [None]
  - HAEMATOCRIT DECREASED [None]
  - HAEMOGLOBIN DECREASED [None]
  - PLATELET COUNT DECREASED [None]
  - PLEURAL EFFUSION [None]
  - RED BLOOD CELL COUNT DECREASED [None]
